FAERS Safety Report 16386550 (Version 1)
Quarter: 2019Q2

REPORT INFORMATION
  Report Type: Spontaneous
  Country: CZ (occurrence: CZ)
  Receive Date: 20190604
  Receipt Date: 20190604
  Transmission Date: 20190711
  Serious: Yes (Other)
  Sender: FDA-Public Use
  Company Number: CZ-PROVELL PHARMACEUTICALS-2067746

PATIENT
  Sex: Female

DRUGS (6)
  1. EUTHYROX [Suspect]
     Active Substance: LEVOTHYROXINE SODIUM
     Indication: IMMUNOSUPPRESSANT DRUG THERAPY
  2. OVITRELLE [Suspect]
     Active Substance: CHORIOGONADOTROPIN ALFA
  3. CLEXANE [Concomitant]
     Active Substance: ENOXAPARIN SODIUM
  4. GONAL-F [Suspect]
     Active Substance: FOLLITROPIN
  5. PREDNISONE. [Concomitant]
     Active Substance: PREDNISONE
  6. CETROTIDE [Suspect]
     Active Substance: CETRORELIX ACETATE

REACTIONS (4)
  - Muscle spasms [None]
  - Flatulence [Recovered/Resolved]
  - Ovarian hyperstimulation syndrome [None]
  - Abdominal pain [None]
